FAERS Safety Report 8309980-5 (Version None)
Quarter: 2012Q2

REPORT INFORMATION
  Report Type: 
  Country: None (occurrence: None)
  Receive Date: 20120425
  Receipt Date: 20120425
  Transmission Date: 20120825
  Serious: Yes (Other)
  Sender: FDA-Public Use
  Company Number: US-PFIZER INC-2012089698

PATIENT
  Sex: Female
  Weight: 54.422 kg

DRUGS (2)
  1. LAMICTAL [Concomitant]
     Indication: MOOD ALTERED
     Dosage: 25 MG, DAILY
  2. LYRICA [Suspect]
     Indication: ANXIETY
     Dosage: 75 MG, DAILY
     Route: 048

REACTIONS (11)
  - HYPOKINESIA [None]
  - VISUAL IMPAIRMENT [None]
  - DIZZINESS [None]
  - DRUG INEFFECTIVE [None]
  - VISION BLURRED [None]
  - MEMORY IMPAIRMENT [None]
  - EUPHORIC MOOD [None]
  - DRUG INTOLERANCE [None]
  - THINKING ABNORMAL [None]
  - WRONG TECHNIQUE IN DRUG USAGE PROCESS [None]
  - NERVOUS SYSTEM DISORDER [None]
